FAERS Safety Report 8047241-2 (Version None)
Quarter: 2012Q1

REPORT INFORMATION
  Report Type: 
  Country: None (occurrence: None)
  Receive Date: 20120116
  Receipt Date: 20120104
  Transmission Date: 20120608
  Serious: Yes (Other)
  Sender: FDA-Public Use
  Company Number: US-BAYER-2012-001778

PATIENT
  Age: 66 Year
  Sex: Female
  Weight: 58 kg

DRUGS (5)
  1. SODIUM BICARBONATE [Suspect]
     Dosage: UNK
     Dates: start: 19700101
  2. AMLODIPINE [Concomitant]
  3. SODIUM BICARBONATE [Suspect]
     Indication: DYSPEPSIA
     Dosage: 2 DF, TID
     Dates: start: 20111221
  4. PLAVIX [Concomitant]
  5. CLONIDINE [Concomitant]

REACTIONS (2)
  - MATERNAL EXPOSURE DURING PREGNANCY [None]
  - DRUG DEPENDENCE [None]
